FAERS Safety Report 6901039-4 (Version None)
Quarter: 2010Q3

REPORT INFORMATION
  Report Type: 
  Country: None (occurrence: None)
  Receive Date: 20100803
  Receipt Date: 20100721
  Transmission Date: 20110219
  Serious: Yes (Hospitalization, Other)
  Sender: FDA-Public Use
  Company Number: PHEH2006US03723

PATIENT
  Sex: Female

DRUGS (45)
  1. ZOMETA [Suspect]
     Indication: BREAST CANCER METASTATIC
     Dosage: 4 MG, QMO
     Route: 042
     Dates: start: 20020617, end: 20050831
  2. FEMARA [Concomitant]
     Dosage: 5 MG, QD
     Route: 048
  3. FEMARA [Concomitant]
     Dosage: 2.5 MG, DAILY
     Dates: start: 20020218
  4. CYTOXAN [Concomitant]
     Dosage: 600 MG/M2, X 6 CYCLES
  5. CYTOXAN [Concomitant]
     Dosage: 600 MG/M2, X 6 CYCLES
  6. LIPITOR [Concomitant]
  7. LISINOPRIL [Concomitant]
  8. FUROSEMIDE [Concomitant]
  9. K-DUR [Concomitant]
  10. TOPROL-XL [Concomitant]
  11. VICODIN [Concomitant]
     Dosage: TAKE ONE OR TWO EVERY 4 -6 HRS IF NEEDED FOR PAIN
  12. PENICILLIN VK [Concomitant]
  13. XELODA [Concomitant]
  14. ZEBETA [Concomitant]
  15. WARFARIN [Concomitant]
  16. NORCO [Concomitant]
  17. ASPIRIN [Concomitant]
  18. MULTIVITAMIN ^LAPPE^ [Concomitant]
     Dosage: 1 DF, QD
  19. FASLODEX [Concomitant]
  20. AUGMENTIN '125' [Concomitant]
  21. POTASSIUM CHLORIDE [Concomitant]
  22. ADRIAMYCIN PFS [Concomitant]
  23. FLUOROURACIL [Concomitant]
  24. TAXOTERE [Concomitant]
  25. ESTRADIOL [Concomitant]
  26. TAMOXIFEN CITRATE [Concomitant]
  27. AROMASIN [Concomitant]
  28. COUMADIN [Concomitant]
     Dosage: 2 MG, UNK
  29. COUMADIN [Concomitant]
     Dosage: 5 MG, QD
     Route: 048
     Dates: start: 20030705
  30. COUMADIN [Concomitant]
     Dosage: 7.5 MG, QD
     Route: 048
     Dates: start: 20030706
  31. PERIDEX [Concomitant]
  32. TETRACYCLINE [Concomitant]
  33. RITUXAN [Concomitant]
  34. DECADRON [Concomitant]
  35. HYDROCODONE BITARTRATE [Concomitant]
  36. FENTANYL CITRATE [Concomitant]
     Dosage: UNK
     Route: 042
  37. VERSED [Concomitant]
     Dosage: 1 MG, UNK
     Route: 042
  38. REGLAN [Concomitant]
     Dosage: 10 MG, UNK
     Route: 042
  39. TIGAN [Concomitant]
     Dosage: 200 MG/2 ML
     Route: 030
  40. ANCEF [Concomitant]
     Dosage: 1G/10 ML
     Route: 042
  41. DEMEROL [Concomitant]
     Dosage: 330 MG/30 ML
  42. DARVOCET-N 100 [Concomitant]
     Dosage: 1 TO 2 PER ORAL EVERY 4 HRS AS NEEDED
  43. KEFLEX [Concomitant]
     Dosage: 500 MG, QID
     Route: 048
  44. VISTARIL [Concomitant]
     Dosage: 50 MG/ML
  45. COMPAZINE [Concomitant]

REACTIONS (58)
  - ABSCESS JAW [None]
  - ACTINOMYCOSIS [None]
  - ALVEOLOPLASTY [None]
  - ANAEMIA [None]
  - ASTHENIA [None]
  - BLOOD PRESSURE DECREASED [None]
  - BLOOD UREA DECREASED [None]
  - BONE DISORDER [None]
  - BONE FRAGMENTATION [None]
  - BONE LESION [None]
  - BONE OPERATION [None]
  - CACHEXIA [None]
  - CARDIAC FAILURE CONGESTIVE [None]
  - CENTRAL VENOUS CATHETERISATION [None]
  - DEFORMITY [None]
  - DENTAL CARIES [None]
  - DENTAL OPERATION [None]
  - DIARRHOEA [None]
  - DYSGEUSIA [None]
  - EATING DISORDER [None]
  - EPISTAXIS [None]
  - ERYTHEMA [None]
  - FISTULA [None]
  - HAEMATOCRIT DECREASED [None]
  - HAEMOGLOBIN DECREASED [None]
  - HYPERLIPIDAEMIA [None]
  - HYPERTENSION [None]
  - INFECTION [None]
  - INFLUENZA [None]
  - INJURY [None]
  - INTERNATIONAL NORMALISED RATIO INCREASED [None]
  - INTRAMEDULLARY ROD INSERTION [None]
  - LOCAL SWELLING [None]
  - MENORRHAGIA [None]
  - METASTASES TO BONE [None]
  - MYOCARDIAL INFARCTION [None]
  - OSTEOARTHRITIS [None]
  - OSTEOMYELITIS [None]
  - OSTEOMYELITIS CHRONIC [None]
  - OSTEONECROSIS OF JAW [None]
  - OSTEOPENIA [None]
  - PAIN [None]
  - PAIN IN EXTREMITY [None]
  - PAIN IN JAW [None]
  - PERIODONTAL DISEASE [None]
  - PHYSICAL DISABILITY [None]
  - POST PROCEDURAL DISCHARGE [None]
  - PRIMARY SEQUESTRUM [None]
  - PROTHROMBIN TIME PROLONGED [None]
  - PURULENT DISCHARGE [None]
  - SINUS ARRHYTHMIA [None]
  - SINUSITIS [None]
  - SKIN LESION [None]
  - SOFT TISSUE INFECTION [None]
  - SPINAL OSTEOARTHRITIS [None]
  - STAPHYLOCOCCAL INFECTION [None]
  - SUPRAVENTRICULAR EXTRASYSTOLES [None]
  - TOOTH EXTRACTION [None]
